FAERS Safety Report 6449625-2 (Version None)
Quarter: 2009Q4

REPORT INFORMATION
  Report Type: 
  Country: None (occurrence: None)
  Receive Date: 20091120
  Receipt Date: 20091111
  Transmission Date: 20100525
  Serious: Yes (Death, Other)
  Sender: FDA-Public Use
  Company Number: US-PFIZER INC-2009295009

PATIENT
  Age: 66 Year
  Sex: Male

DRUGS (4)
  1. CYCLOPHOSPHAMIDE [Suspect]
  2. DOXORUBICIN HCL [Suspect]
  3. VINCRISTINE SULFATE [Suspect]
  4. PREDNISOLONE AND PREDNISOLONE STEAGLATE [Suspect]

REACTIONS (3)
  - PANCYTOPENIA [None]
  - RENAL FAILURE ACUTE [None]
  - SEPTIC SHOCK [None]
